FAERS Safety Report 10470503 (Version 6)
Quarter: 2015Q4

REPORT INFORMATION
  Report Type: Report from Study
  Country: US (occurrence: US)
  Receive Date: 20140923
  Receipt Date: 20151109
  Transmission Date: 20160304
  Serious: Yes (Hospitalization, Other)
  Sender: FDA-Public Use
  Company Number: US-SA-2014SA129366

PATIENT
  Age: 28 Year
  Sex: Female

DRUGS (3)
  1. AUBAGIO [Suspect]
     Active Substance: TERIFLUNOMIDE
     Indication: MULTIPLE SCLEROSIS
     Route: 048
     Dates: start: 20140722, end: 201505
  2. ADDERALL [Concomitant]
     Active Substance: AMPHETAMINE ASPARTATE\AMPHETAMINE SULFATE\DEXTROAMPHETAMINE SACCHARATE\DEXTROAMPHETAMINE SULFATE
     Indication: ATTENTION DEFICIT/HYPERACTIVITY DISORDER
  3. AUBAGIO [Suspect]
     Active Substance: TERIFLUNOMIDE
     Indication: MULTIPLE SCLEROSIS
     Route: 048
     Dates: start: 201506, end: 20151028

REACTIONS (20)
  - Oral infection [Unknown]
  - White blood cell count increased [Unknown]
  - Gait disturbance [Recovering/Resolving]
  - Balance disorder [Unknown]
  - Sputum discoloured [Unknown]
  - Musculoskeletal stiffness [Unknown]
  - Hypoaesthesia [Unknown]
  - Drug dose omission [Unknown]
  - Muscle spasticity [Unknown]
  - Tremor [Unknown]
  - Nasal congestion [Unknown]
  - Fatigue [Unknown]
  - Anaemia [Unknown]
  - Alopecia [Not Recovered/Not Resolved]
  - Multiple sclerosis relapse [Unknown]
  - Multiple sclerosis relapse [Unknown]
  - Eye pain [Unknown]
  - Pulmonary congestion [Unknown]
  - Central nervous system lesion [Unknown]
  - Headache [Unknown]

NARRATIVE: CASE EVENT DATE: 2015
